FAERS Safety Report 19375685 (Version 3)
Quarter: 2025Q2

REPORT INFORMATION
  Report Type: Spontaneous
  Country: US (occurrence: US)
  Receive Date: 20210604
  Receipt Date: 20250501
  Transmission Date: 20250716
  Serious: No
  Sender: PFIZER
  Company Number: US-PFIZER INC-2021252576

PATIENT
  Age: 69 Year
  Sex: Female

DRUGS (3)
  1. IBRANCE [Suspect]
     Active Substance: PALBOCICLIB
     Indication: Breast cancer metastatic
     Route: 048
     Dates: start: 2018
  2. ARIMIDEX [Suspect]
     Active Substance: ANASTROZOLE
     Indication: Breast cancer metastatic
     Dosage: 1 MG, 1X/DAY
     Dates: start: 2018
  3. SYNTHROID [Concomitant]
     Active Substance: LEVOTHYROXINE SODIUM
     Indication: Thyroid cancer

REACTIONS (6)
  - Cough [Unknown]
  - Chest discomfort [Unknown]
  - Pain [Unknown]
  - Arthralgia [Unknown]
  - Arthritis [Unknown]
  - Fatigue [Unknown]
